FAERS Safety Report 21449440 (Version 1)
Quarter: 2022Q4

REPORT INFORMATION
  Report Type: Spontaneous
  Country: US (occurrence: US)
  Receive Date: 20221013
  Receipt Date: 20221013
  Transmission Date: 20230113
  Serious: No
  Sender: FDA-Public Use
  Company Number: US-GSKCCFUS-Case-01519365_AE-86249

PATIENT
  Sex: Male

DRUGS (1)
  1. FLOVENT HFA [Suspect]
     Active Substance: FLUTICASONE PROPIONATE
     Indication: Product used for unknown indication
     Dosage: 1 PUFF(S), QD 44 MCG
     Route: 055

REACTIONS (4)
  - Wrong technique in device usage process [Unknown]
  - Underdose [Unknown]
  - Wrong technique in product usage process [Unknown]
  - Expired product administered [Unknown]
